FAERS Safety Report 20489476 (Version 2)
Quarter: 2022Q2

REPORT INFORMATION
  Report Type: Spontaneous
  Country: US (occurrence: None)
  Receive Date: 20220218
  Receipt Date: 20220403
  Transmission Date: 20220720
  Serious: No
  Sender: FDA-Public Use
  Company Number: 2022A047471

PATIENT
  Age: 23639 Day
  Sex: Female
  Weight: 95.3 kg

DRUGS (5)
  1. BYDUREON BCISE [Suspect]
     Active Substance: EXENATIDE
     Indication: Diabetes mellitus
     Dosage: 2MG/ML ONCE A WEEK
     Route: 058
     Dates: start: 20220126
  2. GABAPENTIN [Concomitant]
     Active Substance: GABAPENTIN
  3. METFORMIN [Concomitant]
     Active Substance: METFORMIN HYDROCHLORIDE
  4. PIOGLITAZONE [Concomitant]
     Active Substance: PIOGLITAZONE
  5. GLIPIZIDE [Concomitant]
     Active Substance: GLIPIZIDE

REACTIONS (4)
  - Injection site discomfort [Unknown]
  - Palpitations [Unknown]
  - Product dose omission issue [Unknown]
  - Device issue [Unknown]

NARRATIVE: CASE EVENT DATE: 20220126
